FAERS Safety Report 24018602 (Version 1)
Quarter: 2024Q2

REPORT INFORMATION
  Report Type: Spontaneous
  Country: JP (occurrence: JP)
  Receive Date: 20240627
  Receipt Date: 20240627
  Transmission Date: 20240715
  Serious: Yes (Other)
  Sender: FDA-Public Use
  Company Number: JP-002147023-NVSJ2024JP007530

PATIENT

DRUGS (1)
  1. AFINITOR [Suspect]
     Active Substance: EVEROLIMUS
     Indication: Neuroendocrine tumour of the rectum
     Dosage: 10 MG, TAKEN FOR OVER 2 YEARS
     Route: 048

REACTIONS (4)
  - Glomerular filtration rate decreased [Unknown]
  - Urinary occult blood positive [Unknown]
  - Blood creatinine increased [Unknown]
  - Proteinuria [Unknown]
